FAERS Safety Report 15602009 (Version 19)
Quarter: 2021Q2

REPORT INFORMATION
  Report Type: Spontaneous
  Country: JP (occurrence: JP)
  Receive Date: 20181109
  Receipt Date: 20210527
  Transmission Date: 20210716
  Serious: Yes (Hospitalization, Other)
  Sender: FDA-Public Use
  Company Number: JP-AMGEN-JPNSP2018159523

PATIENT
  Age: 79 Year
  Sex: Female
  Weight: 57.6 kg

DRUGS (37)
  1. PARSABIV [Suspect]
     Active Substance: ETELCALCETIDE HYDROCHLORIDE
     Dosage: 10 MILLIGRAM, 3 TIMES/WK
     Route: 010
     Dates: start: 20190326, end: 20201212
  2. OXAROL [Suspect]
     Active Substance: MAXACALCITOL
     Indication: PRODUCT USED FOR UNKNOWN INDICATION
     Dosage: 5 MICROGRAM, 3 TIMES/WK
     Route: 042
     Dates: start: 20160112, end: 20180605
  3. NESP [Concomitant]
     Active Substance: DARBEPOETIN ALFA
     Dosage: 15 UG, QW
     Route: 065
     Dates: end: 20181020
  4. OXAROL [Suspect]
     Active Substance: MAXACALCITOL
     Dosage: 5 MICROGRAM, 2 TIMES/WK
     Route: 042
     Dates: start: 20200111, end: 20200328
  5. FOSRENOL [Suspect]
     Active Substance: LANTHANUM CARBONATE
     Dosage: 1250 MG, EVERYDAY
     Route: 048
     Dates: start: 20201013, end: 20210220
  6. PARSABIV [Suspect]
     Active Substance: ETELCALCETIDE HYDROCHLORIDE
     Dosage: 15 MG, Q56H
     Route: 010
     Dates: start: 20201215
  7. OXAROL [Suspect]
     Active Substance: MAXACALCITOL
     Dosage: 10 UG, QW
     Route: 042
     Dates: start: 20200111, end: 20200328
  8. OXAROL [Suspect]
     Active Substance: MAXACALCITOL
     Dosage: 10 MICROGRAM, 2 TIMES/WK
     Route: 042
     Dates: start: 20200912, end: 20201212
  9. FOSRENOL [Suspect]
     Active Substance: LANTHANUM CARBONATE
     Dosage: 750 MG, EVERYDAY
     Route: 048
     Dates: start: 20210304
  10. NESP [Concomitant]
     Active Substance: DARBEPOETIN ALFA
     Dosage: 40 UG, QW
     Route: 065
     Dates: start: 20181110, end: 20181229
  11. NESP [Concomitant]
     Active Substance: DARBEPOETIN ALFA
     Dosage: 10 UG, QW
     Route: 065
     Dates: start: 20190330, end: 20190406
  12. DARBEPOETIN ALFA [Concomitant]
     Active Substance: DARBEPOETIN ALFA
     Dosage: 5 MUG, QW
     Route: 065
     Dates: start: 20190928, end: 20200201
  13. OXAROL [Suspect]
     Active Substance: MAXACALCITOL
     Dosage: 10 MICROGRAM, 3 TIMES/WK
     Route: 042
     Dates: start: 20190528, end: 20190810
  14. OXAROL [Suspect]
     Active Substance: MAXACALCITOL
     Dosage: 5 UG, QW
     Route: 042
     Dates: start: 20200912
  15. REBAMIPIDE [Suspect]
     Active Substance: REBAMIPIDE
     Indication: GASTRITIS PROPHYLAXIS
     Dosage: 100 MG, Q8H
     Route: 048
  16. FOSRENOL [Suspect]
     Active Substance: LANTHANUM CARBONATE
     Dosage: 1000 MG, EVERYDAY
     Route: 048
     Dates: start: 20200319, end: 20201012
  17. NESP [Concomitant]
     Active Substance: DARBEPOETIN ALFA
     Dosage: 5 UG, QW
     Route: 065
     Dates: start: 20190413, end: 20190921
  18. FESIN [SACCHARATED IRON OXIDE] [Concomitant]
     Active Substance: IRON SUCROSE
     Dosage: 40 MILLIGRAM, QWK
     Route: 065
  19. PARSABIV [Suspect]
     Active Substance: ETELCALCETIDE HYDROCHLORIDE
     Dosage: 5 MILLIGRAM, 3 TIMES/WK
     Route: 010
     Dates: start: 20190115, end: 20190323
  20. OXAROL [Suspect]
     Active Substance: MAXACALCITOL
     Dosage: 2.5 MICROGRAM, 3 TIMES/WK
     Route: 042
     Dates: start: 20180607, end: 20190420
  21. OXAROL [Suspect]
     Active Substance: MAXACALCITOL
     Dosage: 5 MICROGRAM, 3 TIMES/WK
     Route: 042
     Dates: start: 20190423, end: 20190525
  22. OXAROL [Suspect]
     Active Substance: MAXACALCITOL
     Dosage: 5 MICROGRAM, 3 TIMES/WK
     Route: 042
     Dates: start: 20200331, end: 20200910
  23. ALOSENN [ACHILLEA MILLEFOLIUM;RUBIA TINCTORUM ROOT TINCTURE;SENNA ALEX [Suspect]
     Active Substance: ACHILLEA MILLEFOLIUM\RUBIA TINCTURE\SENNA FRUIT EXTRACT\SENNA LEAF\TARAXACUM OFFICINALE
     Indication: CONSTIPATION
     Dosage: 2 DOSAGE FORM, QD
     Route: 048
  24. DARBEPOETIN ALFA [Concomitant]
     Active Substance: DARBEPOETIN ALFA
     Dosage: 5 MICROGRAM, QWK
     Route: 065
     Dates: start: 20200905, end: 20210116
  25. AMLODIPINE [Concomitant]
     Active Substance: AMLODIPINE BESYLATE
     Indication: BLOOD PRESSURE MANAGEMENT
     Dosage: 5 MG, EVERYDAY
     Route: 048
  26. PARSABIV [Suspect]
     Active Substance: ETELCALCETIDE HYDROCHLORIDE
     Indication: HYPERPARATHYROIDISM SECONDARY
     Dosage: 2.5 MILLIGRAM, 3 TIMES/WK
     Route: 010
     Dates: start: 20181023, end: 20190112
  27. WARFARIN [WARFARIN SODIUM] [Suspect]
     Active Substance: WARFARIN SODIUM
     Indication: CEREBROVASCULAR ACCIDENT PROPHYLAXIS
     Dosage: 1.5 DOSAGE FORM, QD
     Route: 048
     Dates: start: 20180606
  28. NESP [Concomitant]
     Active Substance: DARBEPOETIN ALFA
     Dosage: 30 UG, QW
     Route: 065
     Dates: start: 20190105, end: 20190119
  29. NESP [Concomitant]
     Active Substance: DARBEPOETIN ALFA
     Dosage: 15 UG, QW
     Route: 065
     Dates: start: 20190126, end: 20190323
  30. DARBEPOETIN ALFA [Concomitant]
     Active Substance: DARBEPOETIN ALFA
     Dosage: 10 MICROGRAM, QWK
     Route: 065
     Dates: start: 20200411, end: 20200829
  31. DARBEPOETIN ALFA [Concomitant]
     Active Substance: DARBEPOETIN ALFA
     Dosage: 15 MICROGRAM, QWK
     Route: 065
     Dates: start: 20210123, end: 20210130
  32. DARBEPOETIN ALFA [Concomitant]
     Active Substance: DARBEPOETIN ALFA
     Dosage: 20 MICROGRAM, QWK
     Route: 065
     Dates: start: 20210206
  33. OXAROL [Suspect]
     Active Substance: MAXACALCITOL
     Dosage: 5 MICROGRAM, 3 TIMES/WK
     Route: 042
     Dates: start: 20190813, end: 20200104
  34. RANITIDINE [RANITIDINE HYDROCHLORIDE] [Suspect]
     Active Substance: RANITIDINE
     Indication: THYROID FUNCTION TEST ABNORMAL
     Dosage: 150 MILLIGRAM, QD
     Route: 048
  35. FOSRENOL [Suspect]
     Active Substance: LANTHANUM CARBONATE
     Indication: BLOOD PHOSPHORUS INCREASED
     Dosage: 250 MG, Q8H
     Route: 048
     Dates: end: 20200318
  36. DARBEPOETIN ALFA [Concomitant]
     Active Substance: DARBEPOETIN ALFA
     Dosage: 15 MUG, QW
     Route: 065
     Dates: start: 20200208, end: 20200404
  37. AZILVA [Concomitant]
     Active Substance: AZILSARTAN KAMEDOXOMIL
     Indication: BLOOD PRESSURE MANAGEMENT
     Dosage: 20 MG, EVERYDAY
     Route: 048

REACTIONS (6)
  - Internal haemorrhage [Recovered/Resolved]
  - Fall [Unknown]
  - Bell^s palsy [Recovering/Resolving]
  - Subcutaneous haematoma [Recovered/Resolved]
  - Vomiting [Recovered/Resolved]
  - Cerebral circulatory failure [Recovered/Resolved]

NARRATIVE: CASE EVENT DATE: 20181024
